FAERS Safety Report 9472609 (Version 1)
Quarter: 2013Q3

REPORT INFORMATION
  Report Type: Spontaneous
  Country: US (occurrence: None)
  Receive Date: 20130821
  Receipt Date: 20130821
  Transmission Date: 20140515
  Serious: No
  Sender: FDA-Public Use
  Company Number: None

PATIENT
  Age: 58 Year
  Sex: Male

DRUGS (2)
  1. PEGASYS PROCLICK [Suspect]
     Indication: CHRONIC HEPATITIS C
     Dosage: INJECT 135 MCG UNDER THE SKIN EVERY WEEK
     Route: 058
     Dates: start: 20130304, end: 20130806
  2. RIBASPHERE [Concomitant]

REACTIONS (5)
  - Chest pain [None]
  - Dyspnoea [None]
  - Dizziness [None]
  - Arrhythmia [None]
  - Cardiac stress test abnormal [None]
